FAERS Safety Report 6683467-8 (Version None)
Quarter: 2010Q2

REPORT INFORMATION
  Report Type: 
  Country: None (occurrence: None)
  Receive Date: 20100415
  Receipt Date: 20100406
  Transmission Date: 20101027
  Serious: Yes (Other)
  Sender: FDA-Public Use
  Company Number: FR-AMGEN-KDL403886

PATIENT
  Age: 43 Year
  Sex: Male

DRUGS (3)
  1. ARANESP [Suspect]
     Indication: DRUG USE FOR UNKNOWN INDICATION
  2. BLOOD CELLS, PACKED HUMAN [Concomitant]
  3. UNSPECIFIED HERBAL PRODUCT [Concomitant]

REACTIONS (2)
  - MYOSITIS [None]
  - TRANSAMINASES INCREASED [None]
